FAERS Safety Report 17795459 (Version 2)
Quarter: 2020Q2

REPORT INFORMATION
  Report Type: Spontaneous
  Country: US (occurrence: US)
  Receive Date: 20200515
  Receipt Date: 20200518
  Transmission Date: 20200714
  Serious: Yes (Other)
  Sender: FDA-Public Use
  Company Number: US-CELGENEUS-USA-20200504530

PATIENT
  Age: 53 Year
  Sex: Male

DRUGS (1)
  1. AZACITIDINE. [Suspect]
     Active Substance: AZACITIDINE
     Indication: MYELODYSPLASTIC SYNDROME
     Route: 041
     Dates: start: 201209

REACTIONS (4)
  - Liver function test increased [Unknown]
  - Renal failure [Unknown]
  - Neutropenia [Unknown]
  - Hepatitis acute [Unknown]

NARRATIVE: CASE EVENT DATE: 201209
